APPROVED DRUG PRODUCT: DALFAMPRIDINE
Active Ingredient: DALFAMPRIDINE
Strength: 10MG
Dosage Form/Route: TABLET, EXTENDED RELEASE;ORAL
Application: A208292 | Product #001
Applicant: SUN PHARMACEUTICAL INDUSTRIES LTD
Approved: May 21, 2019 | RLD: No | RS: No | Type: DISCN